FAERS Safety Report 25523444 (Version 1)
Quarter: 2025Q3

REPORT INFORMATION
  Report Type: Spontaneous
  Country: CA (occurrence: CA)
  Receive Date: 20250707
  Receipt Date: 20250707
  Transmission Date: 20251021
  Serious: Yes (Other)
  Sender: ROCHE
  Company Number: CA-ROCHE-10000328782

PATIENT
  Age: 27 Year
  Sex: Female

DRUGS (5)
  1. RITUXIMAB [Suspect]
     Active Substance: RITUXIMAB
     Indication: Relapsing-remitting multiple sclerosis
     Route: 042
  2. RITUXIMAB [Suspect]
     Active Substance: RITUXIMAB
     Route: 042
  3. ACETAMINOPHEN [Concomitant]
     Active Substance: ACETAMINOPHEN
  4. DIPHENHYDRAMINE [Concomitant]
     Active Substance: DIPHENHYDRAMINE
  5. METHYLPREDNISOLONE [Concomitant]
     Active Substance: METHYLPREDNISOLONE

REACTIONS (13)
  - Bronchospasm [Recovered/Resolved]
  - Chest discomfort [Recovered/Resolved]
  - Ear pruritus [Recovered/Resolved]
  - Facial spasm [Recovered/Resolved]
  - Flushing [Recovered/Resolved]
  - Hypersensitivity [Recovered/Resolved]
  - Infusion related hypersensitivity reaction [Recovered/Resolved]
  - Muscle twitching [Recovered/Resolved]
  - Off label use [Unknown]
  - Tachycardia [Recovered/Resolved]
  - Therapeutic product effect delayed [Recovered/Resolved]
  - Therapy change [Recovered/Resolved]
  - Throat irritation [Recovered/Resolved]
